FAERS Safety Report 12649572 (Version 1)
Quarter: 2016Q3

REPORT INFORMATION
  Report Type: Spontaneous
  Country: GB (occurrence: GB)
  Receive Date: 20160812
  Receipt Date: 20160812
  Transmission Date: 20161109
  Serious: Yes (Hospitalization)
  Sender: FDA-Public Use
  Company Number: GB-009507513-1608GBR005304

PATIENT
  Age: 67 Year
  Sex: Female

DRUGS (2)
  1. DEXAMETHASONE. [Suspect]
     Active Substance: DEXAMETHASONE
     Indication: ADRENOCORTICAL INSUFFICIENCY ACUTE
     Dosage: 4 MG, BID
     Route: 042
  2. DEXAMETHASONE. [Suspect]
     Active Substance: DEXAMETHASONE
     Dosage: 4 MG, ONCE
     Route: 042

REACTIONS (4)
  - Confusional state [Unknown]
  - Substance-induced psychotic disorder [Unknown]
  - Agitation [Unknown]
  - Drug ineffective [Unknown]
